FAERS Safety Report 7083833-5 (Version None)
Quarter: 2010Q4

REPORT INFORMATION
  Report Type: 
  Country: None (occurrence: None)
  Receive Date: 20101104
  Receipt Date: 20101103
  Transmission Date: 20110411
  Serious: Yes (Death, Hospitalization)
  Sender: FDA-Public Use
  Company Number: DE-BRISTOL-MYERS SQUIBB COMPANY-14744346

PATIENT
  Age: 45 Year
  Sex: Male
  Weight: 86 kg

DRUGS (2)
  1. CISPLATIN [Suspect]
     Dosage: 29JUN09-ONG LAST DOSE:20JUL09
     Route: 065
     Dates: start: 20090622
  2. ETOPOSIDE [Suspect]
     Dosage: AND ALSO ON 26JUN09 TO ONG LAST DOSE:24JUL09
     Route: 065
     Dates: start: 20090622

REACTIONS (8)
  - DEATH [None]
  - DYSPHAGIA [None]
  - LARYNGITIS [None]
  - LEUKOPENIA [None]
  - NEUTROPENIA [None]
  - OESOPHAGITIS [None]
  - THROMBOPHLEBITIS [None]
  - VOMITING [None]
